FAERS Safety Report 23769236 (Version 4)
Quarter: 2025Q1

REPORT INFORMATION
  Report Type: Spontaneous
  Country: US (occurrence: US)
  Receive Date: 20240422
  Receipt Date: 20250207
  Transmission Date: 20250409
  Serious: No
  Sender: PFIZER
  Company Number: US-PFIZER INC-202400090252

PATIENT
  Age: 77 Year
  Sex: Female

DRUGS (14)
  1. XELJANZ [Suspect]
     Active Substance: TOFACITINIB CITRATE
  2. METOPROLOL [Concomitant]
     Active Substance: METOPROLOL
  3. TIZANIDINE [Concomitant]
     Active Substance: TIZANIDINE
  4. HYDROXYZINE [Concomitant]
     Active Substance: HYDROXYZINE HYDROCHLORIDE
  5. CHLORTHALIDONE [Concomitant]
     Active Substance: CHLORTHALIDONE
  6. LEXAPRO [Concomitant]
     Active Substance: ESCITALOPRAM OXALATE
  7. ASPIRIN [Concomitant]
     Active Substance: ASPIRIN
  8. GABAPENTIN [Concomitant]
     Active Substance: GABAPENTIN
  9. EZETIMIBE [Concomitant]
     Active Substance: EZETIMIBE
  10. DICLOFENAC [Concomitant]
     Active Substance: DICLOFENAC
  11. OLMESARTAN [Concomitant]
     Active Substance: OLMESARTAN
  12. ROSUVASTATIN [Concomitant]
     Active Substance: ROSUVASTATIN
  13. TRAMADOL [Concomitant]
     Active Substance: TRAMADOL
  14. PREGABALIN [Concomitant]
     Active Substance: PREGABALIN

REACTIONS (4)
  - Cerebral disorder [Unknown]
  - Muscle spasms [Unknown]
  - Brain fog [Unknown]
  - Nasopharyngitis [Unknown]
